FAERS Safety Report 18513365 (Version 1)
Quarter: 2020Q4

REPORT INFORMATION
  Report Type: Spontaneous
  Country: US (occurrence: US)
  Receive Date: 20201117
  Receipt Date: 20201117
  Transmission Date: 20210114
  Serious: Yes (Hospitalization)
  Sender: FDA-Public Use
  Company Number: US-BTGSP-US-BTGSP-20-0221

PATIENT
  Sex: Male

DRUGS (1)
  1. CROFAB [Suspect]
     Active Substance: CROTALIDAE POLYVALENT IMMUNE FAB (OVINE)
     Indication: SNAKE BITE
     Dosage: 6 VIAL, QD
     Route: 065
     Dates: start: 20200819

REACTIONS (5)
  - Swelling [Unknown]
  - Contusion [Unknown]
  - Pain [Unknown]
  - Peripheral swelling [Unknown]
  - Blood blister [Unknown]
